FAERS Safety Report 6959937-1 (Version None)
Quarter: 2010Q3

REPORT INFORMATION
  Report Type: 
  Country: None (occurrence: None)
  Receive Date: 20100901
  Receipt Date: 20100817
  Transmission Date: 20110219
  Serious: Yes (Hospitalization)
  Sender: FDA-Public Use
  Company Number: FR-JNJFOC-20100701571

PATIENT
  Sex: Male

DRUGS (3)
  1. RISPERDAL [Suspect]
     Indication: PSYCHOTIC DISORDER
     Route: 048
  2. RISPERDAL [Suspect]
     Route: 048
  3. LOXAPAC [Concomitant]
     Route: 065

REACTIONS (4)
  - INFLAMMATION [None]
  - PNEUMONIA ASPIRATION [None]
  - PYREXIA [None]
  - RHABDOMYOLYSIS [None]
